FAERS Safety Report 17018205 (Version 1)
Quarter: 2019Q4

REPORT INFORMATION
  Report Type: Spontaneous
  Country: CA (occurrence: CA)
  Receive Date: 20191111
  Receipt Date: 20191111
  Transmission Date: 20200122
  Serious: Yes (Disabling)
  Sender: FDA-Public Use
  Company Number: CA-ALLERGAN-1945297US

PATIENT
  Sex: Male

DRUGS (12)
  1. PMS-SENNOSIDES [Concomitant]
     Dosage: 8.6 MG
  2. KADIAN [Concomitant]
     Active Substance: MORPHINE SULFATE
  3. STATEX [Concomitant]
     Dosage: 10 MG
  4. NITROFURANTOIN. [Concomitant]
     Active Substance: NITROFURANTOIN
  5. BACLOFEN. [Concomitant]
     Active Substance: BACLOFEN
  6. DOMPERIDONE [Concomitant]
     Active Substance: DOMPERIDONE
  7. D-TABS [Concomitant]
     Active Substance: CHOLECALCIFEROL
  8. GABAPENTIN. [Concomitant]
     Active Substance: GABAPENTIN
  9. ALENDRONATE TEVA [Concomitant]
     Active Substance: ALENDRONATE SODIUM
  10. TOVIAZ [Concomitant]
     Active Substance: FESOTERODINE FUMARATE
  11. BENTYLOL TABLETS [Suspect]
     Active Substance: DICYCLOMINE HYDROCHLORIDE
     Indication: PRODUCT USED FOR UNKNOWN INDICATION
     Dosage: 25 MG, QID
     Route: 048
  12. PANTOPRAZOLE [Concomitant]
     Active Substance: PANTOPRAZOLE

REACTIONS (6)
  - Product dispensing error [Unknown]
  - Cognitive disorder [Recovered/Resolved]
  - Tremor [Recovered/Resolved]
  - Hallucination [Recovered/Resolved]
  - Confusional state [Recovered/Resolved]
  - Insomnia [Recovered/Resolved]
